FAERS Safety Report 9153597 (Version 1)
Quarter: 2013Q1

REPORT INFORMATION
  Report Type: Spontaneous
  Country: SE (occurrence: SE)
  Receive Date: 20130311
  Receipt Date: 20130311
  Transmission Date: 20140127
  Serious: Yes (Hospitalization, Other)
  Sender: FDA-Public Use
  Company Number: PHHY2013SE022712

PATIENT
  Age: 52 Year
  Sex: Male

DRUGS (1)
  1. VOLTAREN [Suspect]
     Dates: start: 201210

REACTIONS (5)
  - Mastocytosis [Unknown]
  - Hypotension [Unknown]
  - Vertigo [Unknown]
  - Syncope [Unknown]
  - Nausea [Unknown]
